FAERS Safety Report 7896093-X (Version None)
Quarter: 2011Q4

REPORT INFORMATION
  Report Type: 
  Country: None (occurrence: None)
  Receive Date: 20111106
  Receipt Date: 20110906
  Transmission Date: 20120403
  Serious: No
  Sender: FDA-Public Use
  Company Number: US-AMGEN-USASP2011045410

PATIENT
  Age: 64 Year
  Sex: Female
  Weight: 63.492 kg

DRUGS (11)
  1. ZYRTEC [Concomitant]
     Dosage: 10 MG, UNK
  2. PROVENTIL [Concomitant]
     Dosage: 90 MUG, UNK
  3. FOLIC ACID [Concomitant]
     Dosage: 1 MG, UNK
  4. LANOXIN [Concomitant]
     Dosage: 0.25 MG, UNK
  5. QVAR 40 [Concomitant]
     Dosage: 40 MUG, UNK
  6. ASTELIN [Concomitant]
     Dosage: 137 MUG, UNK
  7. ASMANEX TWISTHALER [Concomitant]
     Dosage: 220 MUG, UNK
  8. ENBREL [Suspect]
     Indication: PRODUCT USED FOR UNKNOWN INDICATION
     Dosage: 50 MG, QWK
     Route: 058
  9. ALPHAGAN [Concomitant]
     Dosage: 0.1 %, UNK
  10. CITALOPRAM HYDROBROMIDE [Concomitant]
     Dosage: 10 MG, UNK
  11. METHOTREXATE [Concomitant]
     Dosage: 2.5 MG, UNK

REACTIONS (3)
  - INJECTION SITE ERYTHEMA [None]
  - INJECTION SITE RASH [None]
  - INJECTION SITE REACTION [None]
